FAERS Safety Report 8081176-4 (Version None)
Quarter: 2012Q1

REPORT INFORMATION
  Report Type: 
  Country: None (occurrence: None)
  Receive Date: 20120130
  Receipt Date: 20120105
  Transmission Date: 20120608
  Serious: Yes (Hospitalization)
  Sender: FDA-Public Use
  Company Number: NL-GLAXOSMITHKLINE-B0775079A

PATIENT
  Sex: Female
  Weight: 61.2 kg

DRUGS (5)
  1. OXYCODONE HCL [Concomitant]
  2. LAPATINIB [Suspect]
     Indication: CERVIX CARCINOMA RECURRENT
     Dosage: 500MG PER DAY
     Route: 048
     Dates: start: 20111215, end: 20120110
  3. ACETAMINOPHEN [Concomitant]
     Dosage: 1000MG FOUR TIMES PER DAY
     Dates: start: 20111214
  4. CISPLATIN [Suspect]
     Indication: CERVIX CARCINOMA RECURRENT
  5. OXAZEPAM [Concomitant]

REACTIONS (4)
  - HYDRONEPHROSIS [None]
  - BLOOD ALBUMIN DECREASED [None]
  - RENAL IMPAIRMENT [None]
  - BLOOD SODIUM DECREASED [None]
